FAERS Safety Report 20332623 (Version 3)
Quarter: 2022Q1

REPORT INFORMATION
  Report Type: Report from Study
  Country: NZ (occurrence: NZ)
  Receive Date: 20220113
  Receipt Date: 20220221
  Transmission Date: 20220423
  Serious: Yes (Other)
  Sender: FDA-Public Use
  Company Number: NZ-AMGEN-NZLNI2021208829

PATIENT
  Age: 56 Year
  Sex: Male

DRUGS (2)
  1. CINACALCET HYDROCHLORIDE [Suspect]
     Active Substance: CINACALCET HYDROCHLORIDE
     Indication: Hyperparathyroidism secondary
     Dosage: 60 MILLIGRAM, QD
     Route: 048
  2. CINACALCET HYDROCHLORIDE [Suspect]
     Active Substance: CINACALCET HYDROCHLORIDE
     Dosage: 60 MILLIGRAM, BID
     Route: 048

REACTIONS (5)
  - Calciphylaxis [Unknown]
  - Calcinosis [Unknown]
  - Blood alkaline phosphatase increased [Unknown]
  - Blood parathyroid hormone increased [Unknown]
  - Drug ineffective [Unknown]

NARRATIVE: CASE EVENT DATE: 20210310
